FAERS Safety Report 5787429-4 (Version None)
Quarter: 2008Q2

REPORT INFORMATION
  Report Type: 
  Country: None (occurrence: None)
  Receive Date: 20080625
  Receipt Date: 20080612
  Transmission Date: 20081010
  Serious: Yes (Hospitalization)
  Sender: FDA-Public Use
  Company Number: JP-ASTRAZENECA-2008SE01335

PATIENT
  Age: 27825 Day
  Sex: Male

DRUGS (5)
  1. BLOPRESS [Suspect]
     Indication: HYPERTENSION
     Route: 048
     Dates: end: 20080220
  2. NIFESLOW [Concomitant]
     Route: 048
  3. PIETENALE [Concomitant]
     Route: 048
  4. MINZAIN [Concomitant]
     Route: 048
  5. MOHRUS TAPE [Concomitant]
     Route: 062

REACTIONS (5)
  - ANGIOEDEMA [None]
  - OEDEMA MOUTH [None]
  - SWELLING [None]
  - SWOLLEN TONGUE [None]
  - TONGUE BITING [None]
